FAERS Safety Report 6969488-6 (Version None)
Quarter: 2010Q3

REPORT INFORMATION
  Report Type: 
  Country: None (occurrence: None)
  Receive Date: 20100902
  Receipt Date: 20100817
  Transmission Date: 20110219
  Serious: Yes (Hospitalization)
  Sender: FDA-Public Use
  Company Number: 2010003048

PATIENT
  Age: 71 Year
  Sex: Female

DRUGS (2)
  1. ERLOTINIB HYDROCHLORIDE [Suspect]
     Indication: ADENOCARCINOMA PANCREAS
     Dosage: (100 MG,QD),ORAL
     Route: 048
     Dates: start: 20100401
  2. GEMCITABINE [Suspect]
     Indication: ADENOCARCINOMA PANCREAS
     Dosage: (1000 MG/M2,DAYS 1, 8 AND 15),INTRAVENOUS
     Route: 042
     Dates: start: 20100401

REACTIONS (9)
  - BACTERIAL INFECTION [None]
  - CHOLANGITIS [None]
  - CHOLECYSTITIS [None]
  - DRUG DOSE OMISSION [None]
  - ENTEROCOCCAL SEPSIS [None]
  - HAEMOGLOBIN DECREASED [None]
  - INFECTION [None]
  - KLEBSIELLA TEST POSITIVE [None]
  - PYREXIA [None]
